FAERS Safety Report 14802807 (Version 1)
Quarter: 2018Q2

REPORT INFORMATION
  Report Type: Spontaneous
  Country: DE (occurrence: DE)
  Receive Date: 20180424
  Receipt Date: 20180424
  Transmission Date: 20180711
  Serious: Yes (Other)
  Sender: FDA-Public Use
  Company Number: DE-PFIZER INC-2018162398

PATIENT
  Age: 79 Year
  Sex: Female

DRUGS (1)
  1. LANTAREL [Suspect]
     Active Substance: METHOTREXATE SODIUM
     Dosage: UNK
     Dates: start: 2011

REACTIONS (5)
  - Blood uric acid increased [Recovering/Resolving]
  - Ear discomfort [Recovering/Resolving]
  - Renal disorder [Recovering/Resolving]
  - Dizziness [Recovering/Resolving]
  - Respiratory distress [Recovering/Resolving]
